FAERS Safety Report 16680560 (Version 2)
Quarter: 2019Q3

REPORT INFORMATION
  Report Type: Spontaneous
  Country: US (occurrence: US)
  Receive Date: 20190807
  Receipt Date: 20190810
  Transmission Date: 20191004
  Serious: No
  Sender: FDA-Public Use
  Company Number: US-JNJFOC-20190732198

PATIENT
  Sex: Female

DRUGS (3)
  1. ESSENTIALS OIL [Concomitant]
     Indication: ALOPECIA
     Route: 061
  2. COCONUT OIL [Concomitant]
     Active Substance: COCONUT OIL
     Indication: ALOPECIA
     Route: 061
  3. WOMENS ROGAINE UNSCENTED [Suspect]
     Active Substance: MINOXIDIL
     Indication: ALOPECIA
     Dosage: UNSURE, MAY BE MORE THAN A CAPFUL, JUST POURED ON HEAD
     Route: 061
     Dates: start: 20190520

REACTIONS (6)
  - Off label use [Unknown]
  - Overdose [Unknown]
  - Wrong technique in product usage process [Unknown]
  - Dry eye [Unknown]
  - Product use in unapproved indication [Unknown]
  - Product formulation issue [Unknown]

NARRATIVE: CASE EVENT DATE: 20190520
